FAERS Safety Report 21822001 (Version 3)
Quarter: 2023Q1

REPORT INFORMATION
  Report Type: Report from Study
  Country: GB (occurrence: GB)
  Receive Date: 20230105
  Receipt Date: 20230324
  Transmission Date: 20230418
  Serious: Yes (Other)
  Sender: FDA-Public Use
  Company Number: GB-CELLTRION INC.-2022GB018407

PATIENT

DRUGS (12)
  1. BEVACIZUMAB [Suspect]
     Active Substance: BEVACIZUMAB
     Indication: Hepatocellular carcinoma
     Dosage: 1700 MG
     Dates: start: 20220427
  2. ATEZOLIZUMAB [Suspect]
     Active Substance: ATEZOLIZUMAB
     Indication: Hepatocellular carcinoma
     Dosage: 1700 MG
     Route: 042
     Dates: start: 20220427
  3. CARVEDILOL [Concomitant]
     Active Substance: CARVEDILOL
     Dosage: 1 DOSE, DAILY
  4. FLUCLOXACILLIN [Concomitant]
     Active Substance: FLUCLOXACILLIN
     Dosage: UNK
  5. OMEPRAZOLE [Concomitant]
     Active Substance: OMEPRAZOLE
     Dosage: 1 DOSE, DAILY
  6. ACETAMINOPHEN [Concomitant]
     Active Substance: ACETAMINOPHEN
     Dosage: 1 DOSE, PRN (AS NECESSARY)
  7. CIPROFLOXACIN [Concomitant]
     Active Substance: CIPROFLOXACIN
     Dosage: UNK
     Dates: start: 20230227
  8. LACTULOSE [Concomitant]
     Active Substance: LACTULOSE
     Dosage: 2, QD
     Dates: start: 20230209, end: 20230222
  9. LACTULOSE [Concomitant]
     Active Substance: LACTULOSE
     Dosage: 3, 1/WEEK
     Dates: start: 20230222, end: 20230228
  10. LACTULOSE [Concomitant]
     Active Substance: LACTULOSE
     Dosage: 3, QD
     Dates: start: 20230228
  11. NITROFURANTOIN [Concomitant]
     Active Substance: NITROFURANTOIN
     Dosage: 2, QD
     Dates: start: 20230216, end: 20230222
  12. RIFAXIMIN [Concomitant]
     Active Substance: RIFAXIMIN
     Dosage: 2, QD
     Dates: start: 20230228

REACTIONS (3)
  - Subcutaneous abscess [Recovered/Resolved]
  - Pruritus [Recovering/Resolving]
  - Off label use [Unknown]

NARRATIVE: CASE EVENT DATE: 20220715
